FAERS Safety Report 8590273-6 (Version None)
Quarter: 2012Q3

REPORT INFORMATION
  Report Type: 
  Country: None (occurrence: None)
  Receive Date: 20120813
  Receipt Date: 20120808
  Transmission Date: 20120928
  Serious: Yes (Other)
  Sender: FDA-Public Use
  Company Number: US-GLAXOSMITHKLINE-A0989000A

PATIENT
  Age: 35 Year
  Sex: Female

DRUGS (2)
  1. TEGRETOL [Suspect]
     Indication: EPILEPSY
     Dosage: 200MGD PER DAY
     Route: 048
  2. LAMICTAL [Suspect]
     Indication: EPILEPSY
     Dosage: 100MGD PER DAY
     Route: 048
     Dates: start: 20110401

REACTIONS (2)
  - MATERNAL EXPOSURE DURING PREGNANCY [None]
  - ABORTION SPONTANEOUS [None]
